FAERS Safety Report 7724964-3 (Version None)
Quarter: 2011Q3

REPORT INFORMATION
  Report Type: 
  Country: None (occurrence: None)
  Receive Date: 20110901
  Receipt Date: 20110824
  Transmission Date: 20111222
  Serious: Yes (Disabling)
  Sender: FDA-Public Use
  Company Number: GB-ALLERGAN-1111337US

PATIENT
  Age: 65 Year
  Sex: Male

DRUGS (5)
  1. BOTULINUM TOXIN TYPE A [Suspect]
     Dosage: UNK
     Dates: start: 20080301, end: 20080301
  2. BOTULINUM TOXIN TYPE A [Suspect]
     Indication: HYPERTONIC BLADDER
     Dosage: 100 UNITS, SINGLE
     Route: 043
     Dates: start: 20100203, end: 20100203
  3. AMITRIPTYLINE HCL [Concomitant]
     Dosage: 10 MG
     Route: 048
  4. RABEPRAZOLE SODIUM [Concomitant]
     Dosage: 20 MG, BID
     Route: 048
     Dates: start: 20090101
  5. SIMVASTATIN [Concomitant]
     Dosage: 40 MG
     Route: 048
     Dates: start: 20080101

REACTIONS (1)
  - ATRIOVENTRICULAR BLOCK [None]
